FAERS Safety Report 9503494 (Version 2)
Quarter: 2013Q3

REPORT INFORMATION
  Report Type: Spontaneous
  Country: AU (occurrence: AU)
  Receive Date: 20130906
  Receipt Date: 20130906
  Transmission Date: 20140515
  Serious: Yes (Hospitalization)
  Sender: FDA-Public Use
  Company Number: AU-PFIZER INC-2013237911

PATIENT
  Age: 64 Year
  Sex: Male
  Weight: 85 kg

DRUGS (3)
  1. LYRICA [Suspect]
     Indication: GENERALISED ANXIETY DISORDER
     Dosage: 75 MG, EVERY MORNING
     Route: 048
     Dates: end: 20130706
  2. INSULIN [Concomitant]
     Dosage: UNK
  3. NORVASC [Concomitant]
     Indication: HYPERTENSION
     Dosage: 5 MG, 1X/MORNING
     Route: 048

REACTIONS (5)
  - Off label use [Unknown]
  - Cardiac failure congestive [Recovering/Resolving]
  - Oedema peripheral [Recovering/Resolving]
  - Localised oedema [Recovering/Resolving]
  - Pleural effusion [Recovering/Resolving]
